FAERS Safety Report 15036346 (Version 1)
Quarter: 2018Q2

REPORT INFORMATION
  Report Type: Spontaneous
  Country: US (occurrence: US)
  Receive Date: 20180530
  Receipt Date: 20180530
  Transmission Date: 20180711
  Serious: Yes (Life-Threatening)
  Sender: FDA-Public Use
  Company Number: None

PATIENT
  Age: 54 Year
  Sex: Male
  Weight: 88 kg

DRUGS (1)
  1. PROLEUKIN [Suspect]
     Active Substance: ALDESLEUKIN
     Indication: NON-SMALL CELL LUNG CANCER
     Route: 042
     Dates: start: 20180113, end: 20180116

REACTIONS (4)
  - Oedema [None]
  - Weight increased [None]
  - Hypoxia [None]
  - Pulmonary oedema [None]

NARRATIVE: CASE EVENT DATE: 20180117
